FAERS Safety Report 6455316-4 (Version None)
Quarter: 2009Q4

REPORT INFORMATION
  Report Type: 
  Country: None (occurrence: None)
  Receive Date: 20091125
  Receipt Date: 20091023
  Transmission Date: 20100525
  Serious: No
  Sender: FDA-Public Use
  Company Number: US-ABBOTT-09P-163-0604870-00

PATIENT
  Sex: Male
  Weight: 96.248 kg

DRUGS (5)
  1. SIMCOR [Suspect]
     Indication: HIGH DENSITY LIPOPROTEIN ABNORMAL
     Dosage: NIGHTLY
     Dates: start: 20091005
  2. SIMCOR [Suspect]
     Indication: BLOOD CHOLESTEROL ABNORMAL
  3. SIMCOR [Suspect]
     Indication: BLOOD CHOLESTEROL
  4. ENTERIC ASPIRIN [Concomitant]
     Indication: DRUG USE FOR UNKNOWN INDICATION
     Route: 048
  5. BETA BLOCKING AGENTS [Concomitant]
     Indication: DRUG USE FOR UNKNOWN INDICATION
     Dosage: DAILY
     Route: 048

REACTIONS (1)
  - BLOOD GLUCOSE ABNORMAL [None]
